FAERS Safety Report 14418365 (Version 1)
Quarter: 2018Q1

REPORT INFORMATION
  Report Type: Spontaneous
  Country: US (occurrence: US)
  Receive Date: 20180119
  Receipt Date: 20180119
  Transmission Date: 20180509
  Serious: Yes (Disabling)
  Sender: FDA-Public Use
  Company Number: None

PATIENT
  Age: 45 Year
  Sex: Male
  Weight: 90 kg

DRUGS (5)
  1. SULFASALAZINE. [Concomitant]
     Active Substance: SULFASALAZINE
  2. FISH OIL [Concomitant]
     Active Substance: FISH OIL
  3. MULTIVITAMIN [Concomitant]
     Active Substance: VITAMINS
  4. INFLECTRA [Suspect]
     Active Substance: INFLIXIMAB-DYYB
     Indication: RHEUMATOID ARTHRITIS
     Dosage: 400 MG; EVERY 6 WEEKS?
     Route: 042
     Dates: start: 20170830, end: 20171122
  5. REMICADE [Concomitant]
     Active Substance: INFLIXIMAB

REACTIONS (9)
  - Fatigue [None]
  - Rheumatoid arthritis [None]
  - Family stress [None]
  - Drug ineffective [None]
  - Product substitution issue [None]
  - Decreased appetite [None]
  - Weight decreased [None]
  - Dysphonia [None]
  - Insomnia [None]

NARRATIVE: CASE EVENT DATE: 20170830
